FAERS Safety Report 17634685 (Version 1)
Quarter: 2020Q2

REPORT INFORMATION
  Report Type: Spontaneous
  Country: ES (occurrence: ES)
  Receive Date: 20200407
  Receipt Date: 20200407
  Transmission Date: 20200713
  Serious: Yes (Hospitalization)
  Sender: FDA-Public Use
  Company Number: ES-TEVA-2020-ES-1219343

PATIENT
  Age: 82 Year
  Sex: Female

DRUGS (10)
  1. PANTOPRAZOL ALMUS 20 MG COMPRIMIDOS GASTRORRESISTENTES EFG, 28 COMPRIM [Concomitant]
  2. STALEVO [Concomitant]
     Active Substance: CARBIDOPA\ENTACAPONE\LEVODOPA
  3. QUETIAPINA (1136A) [Suspect]
     Active Substance: QUETIAPINE
     Dosage: 12.5
     Route: 048
     Dates: start: 20200212, end: 20200213
  4. XADAGO 100MG COMPRIMIDOS RECUBIERTOS CON PELICULA 30 COMPRIMIDOS [Concomitant]
  5. RIVOTRIL [Concomitant]
     Active Substance: CLONAZEPAM
  6. ESERTIA 20 MG/ML GOTAS ORALES EN SOLUCION, 1 FRASCO DE 15 ML [Concomitant]
     Dosage: 1 BOTTLE OF 15 ML
  7. ADIRO 100 MG COMPRIMIDOS GASTRORRESISTENTES EFG [Concomitant]
     Active Substance: ASPIRIN
  8. TRANGOREX 200 MG COMPRIMIDOS , 30 COMPRIMIDOS [Concomitant]
     Active Substance: AMIODARONE HYDROCHLORIDE
  9. AZOPT 10 MG/ML COLIRIO EN SUSPENSION, 1 FRASCO DE 5 ML [Concomitant]
     Dosage: 1 BOTTLE OF 5 ML
  10. GABAPENTINA ALMUS 300 MG CAPSULAS DURAS EFG , 90 C?PSULAS [Concomitant]

REACTIONS (3)
  - Sopor [Recovering/Resolving]
  - Somnolence [Recovering/Resolving]
  - Depressed level of consciousness [Recovering/Resolving]

NARRATIVE: CASE EVENT DATE: 20200213
